FAERS Safety Report 24734768 (Version 2)
Quarter: 2024Q4

REPORT INFORMATION
  Report Type: Report from Study
  Country: US (occurrence: US)
  Receive Date: 20241215
  Receipt Date: 20241225
  Transmission Date: 20250114
  Serious: No
  Sender: SANDOZ
  Company Number: US-SANDOZ-SDZ2024US102362

PATIENT
  Sex: Female

DRUGS (1)
  1. HYRIMOZ [Suspect]
     Active Substance: ADALIMUMAB-ADAZ
     Indication: Crohn^s disease
     Dosage: 40 MG, Q2W
     Route: 058

REACTIONS (4)
  - Circumstance or information capable of leading to medication error [Unknown]
  - Device delivery system issue [Unknown]
  - Device malfunction [Unknown]
  - Incorrect dose administered [Unknown]
